FAERS Safety Report 9420112 (Version 1)
Quarter: 2013Q3

REPORT INFORMATION
  Report Type: Spontaneous
  Country: US (occurrence: US)
  Receive Date: 20130725
  Receipt Date: 20130725
  Transmission Date: 20140515
  Serious: Yes (Other)
  Sender: FDA-Public Use
  Company Number: US-TEVA-421084USA

PATIENT
  Age: 48 Year
  Sex: Male

DRUGS (10)
  1. IFOSFAMIDE [Suspect]
     Indication: SYNOVIAL SARCOMA
     Dosage: 2 G/M2 DURING CYCLE 1 (COURSE 1)
     Route: 065
  2. IFOSFAMIDE [Suspect]
     Indication: SYNOVIAL SARCOMA
     Dosage: 3 G/M2 DURING CYCLES 2-3 (COURSE 1)
     Route: 065
  3. IFOSFAMIDE [Suspect]
     Indication: SYNOVIAL SARCOMA
     Dosage: 2 G/M2 DURING CYCLES 4-6 (COURSE 1)
     Route: 065
  4. IFOSFAMIDE [Suspect]
     Indication: SYNOVIAL SARCOMA
     Dosage: 2 G/M2 DURING CYCLE 1 (COURSE 2)
     Route: 065
  5. IFOSFAMIDE [Suspect]
     Indication: SYNOVIAL SARCOMA
     Dosage: 3 G/M2 DURING CYCLE 2 (COURSE 2)
     Route: 065
  6. IFOSFAMIDE [Suspect]
     Indication: SYNOVIAL SARCOMA
     Dosage: 3.6 G/M2 DURING CYCLE 3 (COURSE 2)
     Route: 065
  7. IFOSFAMIDE [Suspect]
     Indication: SYNOVIAL SARCOMA
     Dosage: 4 G/M2 DURING CYCLE 4 (COURSE 2)
     Route: 065
  8. WARFARIN [Suspect]
     Indication: DEEP VEIN THROMBOSIS
     Route: 065
  9. FUROSEMIDE [Concomitant]
     Dosage: 200MG OVER 1H
     Route: 042
  10. MESNA [Concomitant]
     Dosage: 1/3 OF IFOSFAMIDE DOSE EVERY 4H
     Route: 042

REACTIONS (2)
  - Thrombocytopenia [Unknown]
  - Epistaxis [Unknown]
